FAERS Safety Report 9316895 (Version 1)
Quarter: 2012Q4

REPORT INFORMATION
  Report Type: Spontaneous
  Country: CA (occurrence: None)
  Receive Date: 20121217
  Receipt Date: 20121217
  Transmission Date: 20130627
  Serious: Yes (Other)
  Sender: FDA-Public Use
  Company Number: 2012-18568

PATIENT
  Age: 56 Year
  Sex: Female
  Weight: 52 kg

DRUGS (3)
  1. MESALAMINE [Suspect]
     Indication: DRUG USE FOR UNKNOWN INDICATION
     Dosage: 1600 mg (2 x 800 mg) delayed-release tablet oral dose, Oral
     Route: 048
     Dates: start: 20121022, end: 20121022
  2. ASACOL HD (MESALAZINE) MODIFIED-RELEASE TABLET, 800MG [Suspect]
     Indication: DRUG USE FOR UNKNOWN INDICATION
     Dosage: 1 x 1600 mg (2 x 800 mg) delayed-release tablet oral dose, Oral
     Route: 048
     Dates: end: 20121022
  3. ACETYLSALICYLIC ACID (ACETYSALICYLIC ACID) [Concomitant]

REACTIONS (7)
  - Prinzmetal angina [None]
  - Bradycardia [None]
  - Nausea [None]
  - Pallor [None]
  - Dizziness [None]
  - Myocardial ischaemia [None]
  - Hot flush [None]
